FAERS Safety Report 21331714 (Version 1)
Quarter: 2022Q3

REPORT INFORMATION
  Report Type: Spontaneous
  Country: HR (occurrence: HR)
  Receive Date: 20220914
  Receipt Date: 20220914
  Transmission Date: 20221027
  Serious: Yes (Other)
  Sender: FDA-Public Use
  Company Number: HR-BRISTOL-MYERS SQUIBB COMPANY-2022-057386

PATIENT
  Age: 60 Year
  Sex: Male

DRUGS (10)
  1. OPDIVO [Suspect]
     Active Substance: NIVOLUMAB
     Indication: Non-small cell lung cancer
     Route: 042
     Dates: start: 202104, end: 20220701
  2. OPDIVO [Suspect]
     Active Substance: NIVOLUMAB
     Indication: Squamous cell carcinoma of head and neck
     Dosage: 15 CYCLES
     Route: 042
     Dates: start: 202104
  3. OPDIVO [Suspect]
     Active Substance: NIVOLUMAB
     Dosage: 4TH DOSE
     Route: 065
     Dates: start: 202108
  4. OPDIVO [Suspect]
     Active Substance: NIVOLUMAB
     Dosage: 7TH DOSE
     Route: 042
     Dates: start: 202110
  5. OPDIVO [Suspect]
     Active Substance: NIVOLUMAB
     Route: 042
     Dates: start: 202202
  6. OPDIVO [Suspect]
     Active Substance: NIVOLUMAB
     Dosage: 15 TH DOSE
     Route: 042
     Dates: start: 202205
  7. PANTOPRAZOLE [Concomitant]
     Active Substance: PANTOPRAZOLE
     Indication: Gastritis
     Route: 048
     Dates: start: 20210528
  8. PANTOPRAZOLE [Concomitant]
     Active Substance: PANTOPRAZOLE
     Indication: Gastritis
     Route: 048
     Dates: start: 20210528
  9. FOLIC ACID [Concomitant]
     Active Substance: FOLIC ACID
     Indication: Premedication
     Route: 048
     Dates: start: 20210416
  10. FOLIC ACID [Concomitant]
     Active Substance: FOLIC ACID
     Indication: Premedication
     Route: 048
     Dates: start: 20210416

REACTIONS (6)
  - Hepatotoxicity [Recovering/Resolving]
  - Cholelithiasis [Unknown]
  - Pneumonia [Unknown]
  - Empyema [Unknown]
  - Pneumonitis [Unknown]
  - Pleural effusion [Unknown]

NARRATIVE: CASE EVENT DATE: 20210416
